FAERS Safety Report 9024258 (Version 1)
Quarter: 2013Q1

REPORT INFORMATION
  Report Type: Spontaneous
  Country: US (occurrence: US)
  Receive Date: 20130121
  Receipt Date: 20130121
  Transmission Date: 20140127
  Serious: Yes (Death)
  Sender: FDA-Public Use
  Company Number: PHEH2013US001637

PATIENT
  Age: 80 None
  Sex: Male

DRUGS (7)
  1. EXELON PATCH [Suspect]
     Dosage: UNK UKN, UNK
     Route: 062
  2. NAMENDA [Concomitant]
  3. PLAVIX [Concomitant]
  4. LASIX [Concomitant]
  5. MULTI-VIT [Concomitant]
  6. FISH OIL [Concomitant]
  7. VITAMIN D [Concomitant]

REACTIONS (1)
  - Cardiac failure [Fatal]
